FAERS Safety Report 8856918 (Version 1)
Quarter: 2012Q4

REPORT INFORMATION
  Report Type: 
  Country: CA (occurrence: None)
  Receive Date: 20121023
  Receipt Date: 20121023
  Transmission Date: 20130627
  Serious: Yes (Hospitalization, Other)
  Sender: FDA-Public Use
  Company Number: 2012033556

PATIENT
  Age: 32 Year
  Sex: Female

DRUGS (8)
  1. HUMATE-P [Suspect]
     Indication: PROPHYLAXIS
     Route: 042
  2. HUMATE-P [Suspect]
     Indication: PROPHYLAXIS
     Route: 042
     Dates: start: 2009
  3. HUMATE-P [Suspect]
     Indication: PROPHYLAXIS
     Route: 042
     Dates: start: 2009
  4. HUMATE-P [Suspect]
     Indication: PROPHYLAXIS
     Route: 042
     Dates: start: 2009
  5. HUMATE-P [Suspect]
     Indication: PROPHYLAXIS
     Route: 042
     Dates: start: 2009
  6. HUMATE-P [Suspect]
     Indication: PROPHYLAXIS
     Route: 042
     Dates: start: 2009
  7. PLATELETS (PLATELETS, HUMAN BLOOD) [Concomitant]
  8. PACKED RBC^S (RED BLOOD CELLS) [Concomitant]

REACTIONS (3)
  - Exposure during pregnancy [None]
  - Caesarean section [None]
  - Postpartum haemorrhage [None]
